FAERS Safety Report 11915963 (Version 4)
Quarter: 2018Q1

REPORT INFORMATION
  Report Type: Report from Study
  Country: BR (occurrence: BR)
  Receive Date: 20160114
  Receipt Date: 20180223
  Transmission Date: 20180508
  Serious: Yes (Other)
  Sender: FDA-Public Use
  Company Number: PHHY2016BR003331

PATIENT
  Sex: Female
  Weight: 97 kg

DRUGS (4)
  1. MAREVAN [Concomitant]
     Active Substance: WARFARIN SODIUM
     Indication: PULMONARY EMBOLISM
     Dosage: 2MG 3 TIMES A WEEK AND 1MG 4 TIMES A WEEK
     Route: 048
     Dates: start: 2012
  2. ASA [Concomitant]
     Active Substance: ASPIRIN
     Indication: PRODUCT USED FOR UNKNOWN INDICATION
     Dosage: 1 DF, QD
     Route: 048
     Dates: start: 2013
  3. ATORVASTATIN [Concomitant]
     Active Substance: ATORVASTATIN
     Indication: PROPHYLAXIS
     Dosage: 1 DF, QD
     Route: 048
     Dates: start: 2013
  4. SANDOSTATIN LAR DEPOT [Suspect]
     Active Substance: OCTREOTIDE ACETATE
     Indication: NEUROENDOCRINE TUMOUR
     Dosage: 30 MG, QMO
     Route: 030
     Dates: start: 201207

REACTIONS (16)
  - Decreased immune responsiveness [Unknown]
  - Pain [Not Recovered/Not Resolved]
  - Depression [Not Recovered/Not Resolved]
  - Myalgia [Unknown]
  - Injection site inflammation [Unknown]
  - Pain in extremity [Not Recovered/Not Resolved]
  - Injection site induration [Unknown]
  - Hypertension [Not Recovered/Not Resolved]
  - Wrong technique in product usage process [Unknown]
  - Inflammation [Unknown]
  - Injection site mass [Not Recovered/Not Resolved]
  - Glucose tolerance impaired [Not Recovered/Not Resolved]
  - Injection site erythema [Unknown]
  - Injection site pain [Unknown]
  - Malaise [Unknown]
  - Injection site swelling [Unknown]

NARRATIVE: CASE EVENT DATE: 2012
